FAERS Safety Report 15898351 (Version 1)
Quarter: 2019Q1

REPORT INFORMATION
  Report Type: Report from Study
  Country: IT (occurrence: IT)
  Receive Date: 20190201
  Receipt Date: 20190201
  Transmission Date: 20190417
  Serious: Yes (Hospitalization)
  Sender: FDA-Public Use
  Company Number: IT-TEVA-2019-IT-1005993

PATIENT
  Age: 7 Year
  Sex: Female

DRUGS (2)
  1. PARNAPARIN SODIUM [Suspect]
     Active Substance: PARNAPARIN SODIUM
     Indication: DEEP VEIN THROMBOSIS
     Dosage: 1 DOSAGE FORMS DAILY;
     Route: 058
     Dates: end: 20181112
  2. TICLOPIDINE [Suspect]
     Active Substance: TICLOPIDINE
     Indication: DEEP VEIN THROMBOSIS
     Dosage: 500 MILLIGRAM DAILY;
     Route: 048
     Dates: end: 20181112

REACTIONS (2)
  - Anaemia [Recovered/Resolved]
  - Melaena [Recovered/Resolved]

NARRATIVE: CASE EVENT DATE: 20181112
